FAERS Safety Report 4905950-5 (Version None)
Quarter: 2006Q1

REPORT INFORMATION
  Report Type: 
  Country: None (occurrence: None)
  Receive Date: 20060206
  Receipt Date: 20060123
  Transmission Date: 20060701
  Serious: Yes (Other)
  Sender: FDA-Public Use
  Company Number: 2006012150

PATIENT
  Sex: Female
  Weight: 76.2043 kg

DRUGS (5)
  1. LIPITOR [Suspect]
     Indication: BLOOD CHOLESTEROL INCREASED
     Dosage: 10 MG (10 MG, 1 IN 1 D), ORAL
     Route: 048
  2. LIPITOR [Suspect]
     Indication: BLOOD TRIGLYCERIDES INCREASED
     Dosage: 10 MG (10 MG, 1 IN 1 D), ORAL
     Route: 048
  3. LIPITOR [Suspect]
     Indication: HIGH DENSITY LIPOPROTEIN DECREASED
     Dosage: 10 MG (10 MG, 1 IN 1 D), ORAL
     Route: 048
  4. SYNTHROID [Concomitant]
  5. PREVACID [Concomitant]

REACTIONS (5)
  - ARTHRITIS [None]
  - CONDITION AGGRAVATED [None]
  - INFLAMMATION [None]
  - NEPHROTIC SYNDROME [None]
  - SYSTEMIC LUPUS ERYTHEMATOSUS [None]
